FAERS Safety Report 6978565-5 (Version None)
Quarter: 2010Q3

REPORT INFORMATION
  Report Type: 
  Country: None (occurrence: None)
  Receive Date: 20100913
  Receipt Date: 20100907
  Transmission Date: 20110219
  Serious: Yes (Hospitalization, Other)
  Sender: FDA-Public Use
  Company Number: US-BAYER-201019797BCC

PATIENT
  Age: 58 Year
  Sex: Male
  Weight: 116 kg

DRUGS (20)
  1. ASPIRIN [Suspect]
     Indication: STENT PLACEMENT
     Route: 065
     Dates: start: 20050101, end: 20050601
  2. PLAVIX [Suspect]
     Indication: STENT PLACEMENT
     Dosage: TOTAL DAILY DOSE: 75 MG  UNIT DOSE: 75 MG
     Route: 048
     Dates: start: 20050101, end: 20050625
  3. LOPRESSOR [Concomitant]
     Dosage: TOTAL DAILY DOSE: 100 MG  UNIT DOSE: 50 MG
  4. ACCUPRIL [Concomitant]
     Dosage: TOTAL DAILY DOSE: 40 MG  UNIT DOSE: 20 MG
  5. LIPITOR [Concomitant]
     Dosage: TOTAL DAILY DOSE: 10 MG  UNIT DOSE: 10 MG
  6. GLYCEROL TRINITRATE [Concomitant]
     Indication: CHEST PAIN
     Dosage: TOTAL DAILY DOSE: 0.4 MG  UNIT DOSE: 0.4 MG
     Route: 060
  7. PROTONIX [Concomitant]
     Dosage: TOTAL DAILY DOSE: 40 MG  UNIT DOSE: 40 MG
  8. ACTOS [Concomitant]
     Dosage: TOTAL DAILY DOSE: 30 MG  UNIT DOSE: 30 MG
  9. AMARYL [Concomitant]
     Dosage: TOTAL DAILY DOSE: 2 MG  UNIT DOSE: 2 MG
  10. MAG-OX [Concomitant]
     Dosage: TOTAL DAILY DOSE: 400 MG  UNIT DOSE: 400 MG
  11. MULTI-VITAMINS [Concomitant]
  12. TUMS [Concomitant]
  13. VITAMIN E [Concomitant]
  14. ASCORBIC ACID [Concomitant]
  15. OLEIC ACID [Concomitant]
  16. LOVAZA [Concomitant]
  17. FLAXSEED OIL [Concomitant]
  18. ZOLOFT [Concomitant]
  19. VIAGRA [Concomitant]
  20. ZITHROMAX [Concomitant]

REACTIONS (10)
  - AGITATION [None]
  - BLOOD PRESSURE SYSTOLIC DECREASED [None]
  - BLOOD UREA INCREASED [None]
  - DIARRHOEA [None]
  - GASTROINTESTINAL HAEMORRHAGE [None]
  - GASTROINTESTINAL ULCER HAEMORRHAGE [None]
  - HAEMATEMESIS [None]
  - LETHARGY [None]
  - PLATELET COUNT DECREASED [None]
  - RESPIRATORY DISTRESS [None]
